FAERS Safety Report 23666351 (Version 2)
Quarter: 2024Q2

REPORT INFORMATION
  Report Type: Spontaneous
  Country: US (occurrence: US)
  Receive Date: 20240324
  Receipt Date: 20240522
  Transmission Date: 20240716
  Serious: No
  Sender: FDA-Public Use
  Company Number: US-SA-SAC20240320001375

PATIENT
  Age: 27 Year
  Sex: Female

DRUGS (1)
  1. DUPIXENT [Suspect]
     Active Substance: DUPILUMAB
     Indication: Dermatitis atopic
     Dosage: 300 MG, QOW
     Route: 058

REACTIONS (5)
  - Eyelid skin dryness [Unknown]
  - Condition aggravated [Unknown]
  - Ocular hyperaemia [Not Recovered/Not Resolved]
  - Injection site pain [Unknown]
  - Eye pruritus [Not Recovered/Not Resolved]
